FAERS Safety Report 7955566-1 (Version None)
Quarter: 2011Q4

REPORT INFORMATION
  Report Type: 
  Country: None (occurrence: None)
  Receive Date: 20111202
  Receipt Date: 20111125
  Transmission Date: 20120403
  Serious: Yes (Other)
  Sender: FDA-Public Use
  Company Number: FI-ASTRAZENECA-2011SE71728

PATIENT
  Sex: Male

DRUGS (2)
  1. QUETIAPINE [Suspect]
     Indication: PSYCHOTIC DISORDER
     Route: 048
  2. ZYPREXA [Suspect]
     Indication: PSYCHOTIC DISORDER

REACTIONS (1)
  - HEPATIC ENZYME ABNORMAL [None]
